FAERS Safety Report 5558820-6 (Version None)
Quarter: 2007Q4

REPORT INFORMATION
  Report Type: 
  Country: None (occurrence: None)
  Receive Date: 20071214
  Receipt Date: 20070907
  Transmission Date: 20080405
  Serious: Yes (Hospitalization)
  Sender: FDA-Public Use
  Company Number: US-ABBOTT-07P-163-0416563-00

PATIENT
  Sex: Female
  Weight: 59.02 kg

DRUGS (8)
  1. HUMIRA [Suspect]
     Indication: CROHN'S DISEASE
     Route: 058
     Dates: start: 20070601, end: 20070701
  2. HUMIRA [Suspect]
     Route: 058
     Dates: start: 20070501, end: 20070501
  3. HUMIRA [Suspect]
     Route: 058
     Dates: start: 20070501, end: 20070501
  4. HUMIRA [Suspect]
     Route: 058
     Dates: start: 20070701, end: 20070906
  5. MESALAMINE [Concomitant]
     Indication: CROHN'S DISEASE
     Route: 048
  6. SERTRALINE [Concomitant]
     Indication: ANXIETY
     Route: 048
  7. HYDROCORTISONE [Concomitant]
     Indication: CROHN'S DISEASE
     Route: 054
  8. PREDNISONE [Concomitant]
     Indication: CROHN'S DISEASE
     Route: 048

REACTIONS (4)
  - ABDOMINAL PAIN [None]
  - DIARRHOEA [None]
  - DRUG INEFFECTIVE [None]
  - PNEUMONIA [None]
